FAERS Safety Report 11517773 (Version 3)
Quarter: 2015Q4

REPORT INFORMATION
  Report Type: Spontaneous
  Country: US (occurrence: US)
  Receive Date: 20150917
  Receipt Date: 20151009
  Transmission Date: 20160304
  Serious: Yes (Death, Hospitalization)
  Sender: FDA-Public Use
  Company Number: US-009507513-1509USA007572

PATIENT
  Sex: Female

DRUGS (1)
  1. NOXAFIL [Suspect]
     Active Substance: POSACONAZOLE
     Indication: MYELODYSPLASTIC SYNDROME
     Dosage: 1 TABLET, THREE TIMES A DAY
     Route: 048
     Dates: start: 2015

REACTIONS (2)
  - Stem cell transplant [Fatal]
  - Myelodysplastic syndrome [Fatal]
